FAERS Safety Report 7033850-6 (Version None)
Quarter: 2010Q4

REPORT INFORMATION
  Report Type: 
  Country: None (occurrence: None)
  Receive Date: 20101007
  Receipt Date: 20100930
  Transmission Date: 20110411
  Serious: Yes (Hospitalization)
  Sender: FDA-Public Use
  Company Number: GB-AMGEN-QUU442553

PATIENT
  Age: 42 Year
  Sex: Female

DRUGS (3)
  1. ENBREL [Suspect]
     Indication: PRODUCT USED FOR UNKNOWN INDICATION
     Dosage: UNKNOWN
  2. NAPROXEN [Concomitant]
     Dosage: UNKNOWN
  3. ARAVA [Concomitant]
     Dosage: UNKNOWN

REACTIONS (3)
  - ANAL FISSURE [None]
  - DIARRHOEA [None]
  - INTESTINAL ULCER [None]
